FAERS Safety Report 6558517-X (Version None)
Quarter: 2010Q1

REPORT INFORMATION
  Report Type: 
  Country: None (occurrence: None)
  Receive Date: 20100129
  Receipt Date: 20100122
  Transmission Date: 20100710
  Serious: Yes (Hospitalization)
  Sender: FDA-Public Use
  Company Number: GB-TEVA-222293ISR

PATIENT

DRUGS (1)
  1. PREDNISOLONE [Suspect]
     Indication: WEGENER'S GRANULOMATOSIS

REACTIONS (1)
  - PNEUMONIA [None]
